FAERS Safety Report 18917265 (Version 28)
Quarter: 2025Q3

REPORT INFORMATION
  Report Type: Report from Study
  Country: US (occurrence: US)
  Receive Date: 20210219
  Receipt Date: 20250929
  Transmission Date: 20251021
  Serious: Yes (Hospitalization, Other)
  Sender: TAKEDA
  Company Number: US-SHIRE-US201933590AA

PATIENT
  Age: 76 Year
  Sex: Female
  Weight: 63 kg

DRUGS (30)
  1. ICATIBANT [Suspect]
     Active Substance: ICATIBANT ACETATE
     Indication: Immune system disorder
  2. ICATIBANT [Suspect]
     Active Substance: ICATIBANT ACETATE
     Indication: Prophylaxis
     Dates: start: 20190607, end: 20190607
  3. ICATIBANT [Suspect]
     Active Substance: ICATIBANT ACETATE
  4. TAKHZYRO [Suspect]
     Active Substance: LANADELUMAB-FLYO
     Indication: Immune system disorder
  5. TAKHZYRO [Suspect]
     Active Substance: LANADELUMAB-FLYO
     Indication: Prophylaxis
     Dosage: 300 MILLIGRAM, MONTHLY
     Dates: start: 20181018
  6. TAKHZYRO [Suspect]
     Active Substance: LANADELUMAB-FLYO
     Dosage: 300 MILLIGRAM, Q2WEEKS
  7. TAKHZYRO [Suspect]
     Active Substance: LANADELUMAB-FLYO
     Dosage: 300 MILLIGRAM, Q2WEEKS
     Dates: start: 20181025
  8. TAKHZYRO [Suspect]
     Active Substance: LANADELUMAB-FLYO
     Dosage: 300 MILLIGRAM, Q3WEEKS
  9. TRAMADOL [Suspect]
     Active Substance: TRAMADOL
     Indication: Product used for unknown indication
  10. TETANUS TOXOID ADSORBED (VACCINE) [Suspect]
     Active Substance: TETANUS TOXOIDS
     Indication: Skin laceration
  11. ESTER-C [Concomitant]
     Indication: Product used for unknown indication
  12. VITAMIN D3 [Concomitant]
     Active Substance: CHOLECALCIFEROL
     Indication: Product used for unknown indication
  13. ZOFRAN [Concomitant]
     Active Substance: ONDANSETRON HYDROCHLORIDE
     Indication: Product used for unknown indication
  14. Citracal plus d [Concomitant]
  15. CEFADROXIL [Concomitant]
     Active Substance: CEFADROXIL
  16. DUREZOL [Concomitant]
     Active Substance: DIFLUPREDNATE
  17. MOXIFLOXACIN [Concomitant]
     Active Substance: MOXIFLOXACIN
  18. BROMSITE [Concomitant]
     Active Substance: BROMFENAC SODIUM
     Indication: Product used for unknown indication
  19. PROTONIX [Concomitant]
     Active Substance: PANTOPRAZOLE SODIUM
     Indication: Product used for unknown indication
  20. CYANOCOBALAMIN [Concomitant]
     Active Substance: CYANOCOBALAMIN
     Indication: Product used for unknown indication
  21. MAGNESIUM OXIDE [Concomitant]
     Active Substance: MAGNESIUM OXIDE
     Indication: Product used for unknown indication
  22. COMPAZINE [Concomitant]
     Active Substance: PROCHLORPERAZINE MALEATE
     Indication: Product used for unknown indication
  23. FISH OIL [Concomitant]
     Active Substance: FISH OIL
     Indication: Product used for unknown indication
  24. BILEMIN [Concomitant]
     Indication: Product used for unknown indication
  25. B12 [Concomitant]
     Indication: Product used for unknown indication
  26. THYROID [Concomitant]
     Active Substance: LEVOTHYROXINE\LIOTHYRONINE
     Indication: Product used for unknown indication
  27. FLONASE ALLERGY RELIEF [Concomitant]
     Active Substance: FLUTICASONE PROPIONATE
  28. VITAMIN B [Concomitant]
     Active Substance: VITAMIN B
     Indication: Product used for unknown indication
  29. VITAMIN K [Concomitant]
     Active Substance: PHYTONADIONE
     Indication: Product used for unknown indication
  30. PROBIOTICS NOS [Concomitant]
     Active Substance: PROBIOTICS NOS
     Indication: Product used for unknown indication

REACTIONS (35)
  - Dehydration [Recovered/Resolved]
  - Urinary tract infection fungal [Recovered/Resolved]
  - Tongue fungal infection [Recovered/Resolved]
  - Intestinal obstruction [Unknown]
  - Syncope [Recovered/Resolved]
  - Inappropriate schedule of product administration [Unknown]
  - Scar [Unknown]
  - Gastrointestinal scarring [Unknown]
  - Vomiting [Unknown]
  - White blood cell count increased [Unknown]
  - Intervertebral disc protrusion [Unknown]
  - Sciatica [Unknown]
  - Mycotic allergy [Unknown]
  - Seasonal allergy [Unknown]
  - COVID-19 [Unknown]
  - Osteopenia [Unknown]
  - Skin laceration [Unknown]
  - Vaccination site swelling [Unknown]
  - Infusion site pain [Unknown]
  - Lack of injection site rotation [Unknown]
  - Injection site scar [Unknown]
  - Drug hypersensitivity [Unknown]
  - Injection site induration [Unknown]
  - Gastroenteritis viral [Unknown]
  - Poor venous access [Unknown]
  - Diarrhoea [Recovered/Resolved]
  - Hereditary angioedema [Unknown]
  - Urinary tract infection [Unknown]
  - Injection site bruising [Unknown]
  - Headache [Not Recovered/Not Resolved]
  - Injection site pruritus [Unknown]
  - Injection site pain [Unknown]
  - Injection site swelling [Unknown]
  - Trigger finger [Recovered/Resolved]
  - Nausea [Not Recovered/Not Resolved]

NARRATIVE: CASE EVENT DATE: 20181019
